FAERS Safety Report 15277282 (Version 1)
Quarter: 2018Q3

REPORT INFORMATION
  Report Type: Spontaneous
  Country: SE (occurrence: SE)
  Receive Date: 20180814
  Receipt Date: 20180814
  Transmission Date: 20181010
  Serious: Yes (Disabling, Other)
  Sender: FDA-Public Use
  Company Number: SE-PFIZER INC-2018322679

PATIENT
  Age: 71 Year
  Sex: Female

DRUGS (2)
  1. SPIRONOLACTONE. [Suspect]
     Active Substance: SPIRONOLACTONE
     Indication: HYPERTENSION
     Dosage: 25 MG, DAILY
     Dates: start: 20171220, end: 20180404
  2. LOSARTAN AND HYDROCHLOROTHIAZIDE [Concomitant]
     Active Substance: HYDROCHLOROTHIAZIDE\LOSARTAN POTASSIUM
     Dosage: UNK

REACTIONS (6)
  - Mouth ulceration [Not Recovered/Not Resolved]
  - Oral herpes [Not Recovered/Not Resolved]
  - Ageusia [Recovered/Resolved with Sequelae]
  - Anosmia [Recovered/Resolved with Sequelae]
  - Diarrhoea [Unknown]
  - Oral mucosal exfoliation [Unknown]

NARRATIVE: CASE EVENT DATE: 201712
